FAERS Safety Report 10387267 (Version 2)
Quarter: 2014Q3

REPORT INFORMATION
  Report Type: Spontaneous
  Country: US (occurrence: US)
  Receive Date: 20140815
  Receipt Date: 20140828
  Transmission Date: 20150326
  Serious: Yes (Disabling)
  Sender: FDA-Public Use
  Company Number: US-009507513-1408USA008103

PATIENT
  Age: 56 Year
  Sex: Male

DRUGS (3)
  1. VICTRELIS [Suspect]
     Active Substance: BOCEPREVIR
     Indication: HEPATITIS C
     Dosage: 4 CAPSULES (800MG) BY MOUTH THREE TIMES A DAY WITH MEALS OR SNACK
     Route: 048
     Dates: start: 20131116, end: 20140729
  2. PEGASYS [Suspect]
     Active Substance: PEGINTERFERON ALFA-2A
     Indication: HEPATITIS C
     Dosage: 180 MC
  3. RIBASPHERE [Suspect]
     Active Substance: RIBAVIRIN
     Indication: HEPATITIS C
     Dosage: 200M

REACTIONS (4)
  - Syncope [Unknown]
  - Tinnitus [Not Recovered/Not Resolved]
  - Nausea [Not Recovered/Not Resolved]
  - Asthenia [Not Recovered/Not Resolved]

NARRATIVE: CASE EVENT DATE: 20140630
